FAERS Safety Report 6850874-X (Version None)
Quarter: 2010Q3

REPORT INFORMATION
  Report Type: 
  Country: None (occurrence: None)
  Receive Date: 20100716
  Receipt Date: 20071126
  Transmission Date: 20110219
  Serious: Yes (Other)
  Sender: FDA-Public Use
  Company Number: US-PFIZER INC-2007090373

PATIENT
  Sex: Male
  Weight: 113 kg

DRUGS (3)
  1. CHANTIX [Suspect]
     Indication: SMOKING CESSATION THERAPY
     Route: 048
     Dates: start: 20071011
  2. OMEPRAZOLE [Concomitant]
     Indication: GASTROOESOPHAGEAL REFLUX DISEASE
  3. METFORMIN HCL [Concomitant]
     Indication: DIABETES MELLITUS

REACTIONS (7)
  - DYSPEPSIA [None]
  - DYSPNOEA [None]
  - FATIGUE [None]
  - HYPERTENSION [None]
  - PARAESTHESIA [None]
  - SOMNOLENCE [None]
  - TREMOR [None]
